FAERS Safety Report 16982169 (Version 2)
Quarter: 2019Q4

REPORT INFORMATION
  Report Type: Spontaneous
  Country: US (occurrence: US)
  Receive Date: 20191101
  Receipt Date: 20191128
  Transmission Date: 20200122
  Serious: No
  Sender: FDA-Public Use
  Company Number: US-GLAXOSMITHKLINE-US2019AMR192462

PATIENT
  Age: 58 Year
  Sex: Male
  Weight: 139.68 kg

DRUGS (1)
  1. NUCALA [Suspect]
     Active Substance: MEPOLIZUMAB
     Indication: ASTHMA
     Dosage: 100 MG, Q4WK
     Route: 042
     Dates: start: 20190618

REACTIONS (5)
  - Rash pruritic [Recovering/Resolving]
  - Skin burning sensation [Unknown]
  - Dermatitis psoriasiform [Unknown]
  - Rash papular [Recovering/Resolving]
  - Parapsoriasis [Unknown]

NARRATIVE: CASE EVENT DATE: 20191012
